FAERS Safety Report 6118961-1 (Version None)
Quarter: 2009Q1

REPORT INFORMATION
  Report Type: 
  Country: None (occurrence: None)
  Receive Date: 20090316
  Receipt Date: 20090227
  Transmission Date: 20090719
  Serious: Yes (Other)
  Sender: FDA-Public Use
  Company Number: CA-PURDUE-CAN_2009_0000920

PATIENT
  Age: 52 Year
  Sex: Male

DRUGS (1)
  1. HYDROMORPH CONTIN 24 MG [Suspect]
     Indication: BACK PAIN
     Dosage: 1 CAPSL, Q12H
     Route: 048

REACTIONS (3)
  - DENTAL CARIES [None]
  - PAIN [None]
  - VOMITING [None]
